FAERS Safety Report 8064941-9 (Version None)
Quarter: 2012Q1

REPORT INFORMATION
  Report Type: 
  Country: None (occurrence: None)
  Receive Date: 20120124
  Receipt Date: 20120112
  Transmission Date: 20120608
  Serious: No
  Sender: FDA-Public Use
  Company Number: US-BIOGENIDEC-2012BI001957

PATIENT
  Age: 41 Year
  Sex: Female

DRUGS (4)
  1. BENADRYL [Concomitant]
     Indication: PROPHYLAXIS
     Route: 048
     Dates: start: 20120103, end: 20120103
  2. TYSABRI [Suspect]
     Indication: MULTIPLE SCLEROSIS
     Route: 042
     Dates: start: 20120103
  3. TYLENOL (CAPLET) [Concomitant]
     Indication: PROPHYLAXIS
     Route: 048
     Dates: start: 20120103, end: 20120103
  4. CHANTIX [Concomitant]
     Indication: SMOKING CESSATION THERAPY
     Dates: start: 20111201

REACTIONS (1)
  - PRURITUS [None]
